FAERS Safety Report 7116041-X (Version None)
Quarter: 2010Q4

REPORT INFORMATION
  Report Type: 
  Country: None (occurrence: None)
  Receive Date: 20101122
  Receipt Date: 20101111
  Transmission Date: 20110411
  Serious: Yes (Death)
  Sender: FDA-Public Use
  Company Number: SE-ROCHE-740626

PATIENT
  Age: 59 Year
  Sex: Female

DRUGS (18)
  1. HERCEPTIN [Suspect]
     Dosage: DOSE REPORTED AS: 1 DFC
     Route: 042
     Dates: start: 20090915, end: 20100416
  2. CITALOPRAM [Suspect]
     Dosage: DOSE: 40 MGD
     Route: 048
  3. FRAGMIN [Suspect]
     Indication: PULMONARY EMBOLISM
     Dosage: DOSE: 1 DFD
     Route: 058
     Dates: start: 20090901, end: 20100416
  4. TEGRETOL [Concomitant]
  5. KALCIPOS-D [Concomitant]
  6. NULYTELY [Concomitant]
     Route: 048
  7. FORLAX [Concomitant]
     Route: 048
  8. OMEPRAZOLE [Concomitant]
  9. ZOPICLONE [Concomitant]
  10. FOLACIN [Concomitant]
  11. ALVEDON [Concomitant]
  12. BEHEPAN [Concomitant]
  13. DUROFERON [Concomitant]
  14. DIMETICONE ALUMINIUM HYDROXIDE [Concomitant]
  15. SOBRIL [Concomitant]
  16. VISCOTEARS [Concomitant]
     Dosage: DOSE: 2 MG/G
  17. DICLOFENAC SODIUM [Concomitant]
  18. LEVOTHYROXINE SODIUM [Concomitant]

REACTIONS (2)
  - CARDIOMYOPATHY [None]
  - RETROPERITONEAL HAEMORRHAGE [None]
